FAERS Safety Report 12577970 (Version 1)
Quarter: 2016Q3

REPORT INFORMATION
  Report Type: Spontaneous
  Country: US (occurrence: US)
  Receive Date: 20160721
  Receipt Date: 20160721
  Transmission Date: 20161109
  Serious: No
  Sender: FDA-Public Use
  Company Number: US-BIOGEN-2016BI00266666

PATIENT
  Sex: Female

DRUGS (5)
  1. AVONEX [Concomitant]
     Active Substance: INTERFERON BETA-1A
     Dates: start: 20070928
  2. AVONEX [Concomitant]
     Active Substance: INTERFERON BETA-1A
     Dates: start: 20070901
  3. AVONEX [Concomitant]
     Active Substance: INTERFERON BETA-1A
     Dates: start: 20111005, end: 20160601
  4. TECFIDERA [Suspect]
     Active Substance: DIMETHYL FUMARATE
     Indication: MULTIPLE SCLEROSIS
     Dates: start: 20160629
  5. AVONEX [Concomitant]
     Active Substance: INTERFERON BETA-1A
     Indication: MULTIPLE SCLEROSIS
     Dates: start: 20070928, end: 20080814

REACTIONS (6)
  - Abdominal discomfort [Unknown]
  - Pain [Unknown]
  - Gastric disorder [Unknown]
  - Dyspepsia [Unknown]
  - Nausea [Unknown]
  - Drug dose omission [Unknown]
